FAERS Safety Report 8362548-7 (Version None)
Quarter: 2012Q2

REPORT INFORMATION
  Report Type: 
  Country: None (occurrence: None)
  Receive Date: 20120516
  Receipt Date: 20120510
  Transmission Date: 20120825
  Serious: Yes (Life-Threatening, Hospitalization)
  Sender: FDA-Public Use
  Company Number: JP-SHIRE-ALL1-2012-02398

PATIENT
  Age: 74 Year
  Sex: Male

DRUGS (1)
  1. FOSRENOL [Suspect]
     Indication: HYPERPHOSPHATAEMIA
     Dosage: 750 MG, OTHER(TOTAL DAILY DOSE)
     Route: 048
     Dates: start: 20090701, end: 20120406

REACTIONS (1)
  - LARGE INTESTINE PERFORATION [None]
